FAERS Safety Report 7249853-2 (Version None)
Quarter: 2011Q1

REPORT INFORMATION
  Report Type: 
  Country: None (occurrence: None)
  Receive Date: 20110128
  Receipt Date: 20100604
  Transmission Date: 20110831
  Serious: No
  Sender: FDA-Public Use
  Company Number: A0866115A

PATIENT
  Age: 63 Year
  Sex: Female

DRUGS (3)
  1. LAMICTAL [Concomitant]
  2. CYMBALTA [Concomitant]
  3. WELLBUTRIN XL [Suspect]
     Route: 065

REACTIONS (1)
  - PRURITUS [None]
